FAERS Safety Report 4395556-1 (Version None)
Quarter: 2004Q3

REPORT INFORMATION
  Report Type: 
  Country: None (occurrence: None)
  Receive Date: 20040707
  Receipt Date: 20040623
  Transmission Date: 20050211
  Serious: Yes (Hospitalization)
  Sender: FDA-Public Use
  Company Number: RS004563-GB

PATIENT
  Sex: Female

DRUGS (1)
  1. RABEPRAZOLE SODIUM [Suspect]
     Indication: HIATUS HERNIA
     Dosage: ORAL
     Route: 048

REACTIONS (2)
  - HALLUCINATION, AUDITORY [None]
  - PARANOIA [None]
